FAERS Safety Report 5128117-7 (Version None)
Quarter: 2006Q4

REPORT INFORMATION
  Report Type: 
  Country: None (occurrence: None)
  Receive Date: 20061011
  Receipt Date: 20061005
  Transmission Date: 20070319
  Serious: Yes (Life-Threatening)
  Sender: FDA-Public Use
  Company Number: 2006P1000456

PATIENT
  Sex: Female

DRUGS (1)
  1. NICARDIPINE HYDROCHLORIDE [Suspect]
     Indication: TOCOLYSIS

REACTIONS (2)
  - ACUTE PULMONARY OEDEMA [None]
  - DRUG EXPOSURE DURING PREGNANCY [None]
